FAERS Safety Report 8280999-6 (Version None)
Quarter: 2012Q2

REPORT INFORMATION
  Report Type: 
  Country: None (occurrence: None)
  Receive Date: 20120412
  Receipt Date: 20120411
  Transmission Date: 20120825
  Serious: Yes (Hospitalization, Other)
  Sender: FDA-Public Use
  Company Number: MX-ABBOTT-12P-107-0892360-00

PATIENT
  Sex: Female
  Weight: 47 kg

DRUGS (2)
  1. METHOTREXATE [Concomitant]
     Indication: PRODUCT USED FOR UNKNOWN INDICATION
     Dosage: 3 TAB ON SAT AND 3 TAB ON SUNDAY: WEEKLY
     Dates: start: 20110401, end: 20110901
  2. HUMIRA [Suspect]
     Indication: SPONDYLITIS
     Route: 058
     Dates: start: 20110601, end: 20111019

REACTIONS (5)
  - HERPES VIRUS INFECTION [None]
  - LUNG DISORDER [None]
  - TUBERCULOSIS [None]
  - MALAISE [None]
  - NERVE INJURY [None]
